FAERS Safety Report 8485778-2 (Version None)
Quarter: 2012Q3

REPORT INFORMATION
  Report Type: 
  Country: None (occurrence: None)
  Receive Date: 20120703
  Receipt Date: 20120629
  Transmission Date: 20120928
  Serious: Yes (Other)
  Sender: FDA-Public Use
  Company Number: US-PFIZER INC-2012157051

PATIENT
  Sex: Female
  Weight: 56.689 kg

DRUGS (4)
  1. SIMVASTATIN [Concomitant]
     Indication: BLOOD CHOLESTEROL INCREASED
     Dosage: 40 MG, 1X/DAY
  2. LYRICA [Suspect]
     Dosage: 100 MG, 2X/DAY
     Route: 048
     Dates: start: 20120501, end: 20120601
  3. LYRICA [Suspect]
     Dosage: 50 MG, 2X/DAY
     Route: 048
     Dates: start: 20120501
  4. FOSAMAX [Concomitant]
     Indication: OSTEOPENIA
     Dosage: UNK, WEEKLY

REACTIONS (15)
  - DISTURBANCE IN ATTENTION [None]
  - OEDEMA MOUTH [None]
  - SWOLLEN TONGUE [None]
  - DIZZINESS [None]
  - GINGIVAL SWELLING [None]
  - MENTAL IMPAIRMENT [None]
  - SPEECH DISORDER [None]
  - HYPOAESTHESIA ORAL [None]
  - EUPHORIC MOOD [None]
  - HYPOAESTHESIA [None]
  - HYPERSENSITIVITY [None]
  - FALL [None]
  - SWELLING FACE [None]
  - FEELING ABNORMAL [None]
  - PAIN IN EXTREMITY [None]
